FAERS Safety Report 12594392 (Version 1)
Quarter: 2016Q3

REPORT INFORMATION
  Report Type: Spontaneous
  Country: US (occurrence: US)
  Receive Date: 20160726
  Receipt Date: 20160726
  Transmission Date: 20161109
  Serious: Yes (Hospitalization)
  Sender: FDA-Public Use
  Company Number: US-UNITED THERAPEUTICS-UNT-2016-000773

PATIENT
  Age: 48 Year
  Sex: Female
  Weight: 100.23 kg

DRUGS (2)
  1. REMODULIN [Suspect]
     Active Substance: TREPROSTINIL
     Dosage: UNK
     Route: 041
  2. REMODULIN [Suspect]
     Active Substance: TREPROSTINIL
     Indication: PULMONARY ARTERIAL HYPERTENSION
     Dosage: 0.055 ?G/KG, CONTINUING
     Route: 041
     Dates: start: 20140912

REACTIONS (2)
  - Injection site oedema [Unknown]
  - Haemorrhage [Unknown]

NARRATIVE: CASE EVENT DATE: 201601
